FAERS Safety Report 20195485 (Version 1)
Quarter: 2021Q4

REPORT INFORMATION
  Report Type: Spontaneous
  Country: CA (occurrence: CA)
  Receive Date: 20211216
  Receipt Date: 20211216
  Transmission Date: 20220304
  Serious: Yes (Death, Other)
  Sender: FDA-Public Use
  Company Number: CA-OTSUKA-2021_043357

PATIENT
  Age: 24 Year
  Sex: Male

DRUGS (6)
  1. ABILIFY MAINTENA [Suspect]
     Active Substance: ARIPIPRAZOLE
     Indication: Psychotic symptom
     Dosage: 400 MG, QM
     Route: 030
  2. OLANZAPINE [Suspect]
     Active Substance: OLANZAPINE
     Indication: Psychotic symptom
     Dosage: 1 DF, QD
     Route: 065
  3. OLANZAPINE [Suspect]
     Active Substance: OLANZAPINE
     Dosage: 15 MG, QD
     Route: 065
  4. ZUCLOPENTHIXOL ACETATE [Suspect]
     Active Substance: ZUCLOPENTHIXOL ACETATE
     Indication: Psychiatric decompensation
     Dosage: UNK, SINGLE (50 MG/ML SOLUTION INTRAMUSCULAR, ONCE)
     Route: 030
  5. QUETIAPINE [Suspect]
     Active Substance: QUETIAPINE
     Indication: Insomnia
     Dosage: 100 MG, AS REQUIRED
     Route: 065
  6. LORAZEPAM [Concomitant]
     Active Substance: LORAZEPAM
     Indication: Product used for unknown indication
     Dosage: UNK
     Route: 065

REACTIONS (18)
  - Accidental death [Fatal]
  - Acute pulmonary oedema [Fatal]
  - Antipsychotic drug level decreased [Fatal]
  - Anxiolytic therapy [Fatal]
  - Cardiac failure [Fatal]
  - Drug therapy enhancement [Fatal]
  - Iatrogenic injury [Fatal]
  - Multiple drug therapy [Fatal]
  - Paradoxical drug reaction [Fatal]
  - Arrhythmia [Fatal]
  - Ventricular arrhythmia [Fatal]
  - Psychotic disorder [Fatal]
  - Agitation [Fatal]
  - Prescribed overdose [Fatal]
  - Therapeutic product effect incomplete [Unknown]
  - Product dose omission issue [Unknown]
  - Inappropriate schedule of product administration [Unknown]
  - Off label use [Unknown]
